FAERS Safety Report 16920505 (Version 5)
Quarter: 2019Q4

REPORT INFORMATION
  Report Type: Spontaneous
  Country: US (occurrence: US)
  Receive Date: 20191015
  Receipt Date: 20191029
  Transmission Date: 20200122
  Serious: Yes (Hospitalization)
  Sender: FDA-Public Use
  Company Number: US-CELGENEUS-USA-20191003777

PATIENT
  Age: 52 Year
  Sex: Male

DRUGS (8)
  1. KYPROLIS [Concomitant]
     Active Substance: CARFILZOMIB
     Indication: PLASMA CELL MYELOMA
     Route: 048
     Dates: end: 201802
  2. POMALYST [Suspect]
     Active Substance: POMALIDOMIDE
     Indication: PLASMA CELL MYELOMA
     Dosage: 4 MILLIGRAM
     Route: 048
     Dates: start: 20190122
  3. LEVOTHYROXIN [Concomitant]
     Active Substance: LEVOTHYROXINE
     Indication: HYPOTHYROIDISM
     Dosage: 88 MICROGRAM
     Route: 048
     Dates: start: 20190202
  4. DEXAMETHASONE. [Concomitant]
     Active Substance: DEXAMETHASONE
     Dosage: 40 MILLIGRAM
     Route: 048
     Dates: start: 2019
  5. POMALYST [Suspect]
     Active Substance: POMALIDOMIDE
     Dosage: 4 MILLIGRAM
     Route: 048
     Dates: start: 20190212
  6. TAMOXIFEN [Concomitant]
     Active Substance: TAMOXIFEN
     Indication: PLASMA CELL MYELOMA
     Dosage: KPD REGIMEN
     Route: 048
     Dates: start: 20190314
  7. KYPROLIS [Concomitant]
     Active Substance: CARFILZOMIB
     Dosage: 40MG/ 140 MG ONCE
     Route: 048
     Dates: start: 20190122, end: 20190129
  8. DEXAMETHASONE. [Concomitant]
     Active Substance: DEXAMETHASONE
     Indication: PLASMA CELL MYELOMA
     Dosage: 40 MILLIGRAM
     Route: 048
     Dates: start: 20190122

REACTIONS (4)
  - Pulmonary embolism [Recovering/Resolving]
  - Pneumonitis [Recovered/Resolved]
  - Deep vein thrombosis [Recovering/Resolving]
  - Pneumonia [Recovered/Resolved]

NARRATIVE: CASE EVENT DATE: 20190129
